FAERS Safety Report 4582094-6 (Version None)
Quarter: 2005Q1

REPORT INFORMATION
  Report Type: 
  Country: None (occurrence: None)
  Receive Date: 20050119
  Receipt Date: 20031121
  Transmission Date: 20050727
  Serious: Yes (Hospitalization)
  Sender: FDA-Public Use
  Company Number: A03200302828

PATIENT
  Age: 46 Year
  Sex: Male
  Weight: 77.1115 kg

DRUGS (2)
  1. PLAVIX [Suspect]
     Indication: THROMBOSIS
     Dosage: 75 MG QD - ORAL
     Route: 048
     Dates: start: 20030701, end: 20030101
  2. ACETYLSALICYLIC ACID SRT [Concomitant]

REACTIONS (6)
  - ASTHENIA [None]
  - CYANOSIS [None]
  - DYSPNOEA [None]
  - HYPERHIDROSIS [None]
  - HYPOAESTHESIA [None]
  - MUSCLE SPASMS [None]
